FAERS Safety Report 11252373 (Version 1)
Quarter: 2015Q3

REPORT INFORMATION
  Report Type: Spontaneous
  Country: US (occurrence: US)
  Receive Date: 20150708
  Receipt Date: 20150708
  Transmission Date: 20151125
  Serious: No
  Sender: FDA-Public Use
  Company Number: US-ELI_LILLY_AND_COMPANY-US201404001504

PATIENT
  Age: 46 Year
  Sex: Male

DRUGS (7)
  1. ALIMTA [Suspect]
     Active Substance: PEMETREXED DISODIUM
     Indication: BLADDER CANCER
     Dosage: 500 MG/M2, EVERY 3 WEEKS
     Route: 065
     Dates: start: 201210
  2. AFRIN [Concomitant]
     Active Substance: OXYMETAZOLINE
  3. XANAX [Concomitant]
     Active Substance: ALPRAZOLAM
  4. FOLIC ACID. [Concomitant]
     Active Substance: FOLIC ACID
  5. HYDROCHLOROTHIAZIDE. [Concomitant]
     Active Substance: HYDROCHLOROTHIAZIDE
  6. BENICAR [Concomitant]
     Active Substance: OLMESARTAN MEDOXOMIL
  7. COLACE [Concomitant]
     Active Substance: DOCUSATE SODIUM

REACTIONS (3)
  - Periorbital oedema [Recovered/Resolved]
  - Feeling abnormal [Unknown]
  - Face oedema [Recovered/Resolved]

NARRATIVE: CASE EVENT DATE: 201401
